FAERS Safety Report 5962448-3 (Version None)
Quarter: 2008Q4

REPORT INFORMATION
  Report Type: 
  Country: None (occurrence: None)
  Receive Date: 20081121
  Receipt Date: 20081110
  Transmission Date: 20090506
  Serious: Yes (Other)
  Sender: FDA-Public Use
  Company Number: US-PFIZER INC-2008053910

PATIENT
  Sex: Female

DRUGS (1)
  1. NEURONTIN [Suspect]
     Indication: COMPLEX REGIONAL PAIN SYNDROME
     Dates: start: 19980901, end: 20060501

REACTIONS (4)
  - DENTAL CARIES [None]
  - ENAMEL ANOMALY [None]
  - MASTICATION DISORDER [None]
  - TOOTH FRACTURE [None]
